FAERS Safety Report 8461380-3 (Version None)
Quarter: 2012Q2

REPORT INFORMATION
  Report Type: 
  Country: None (occurrence: None)
  Receive Date: 20120625
  Receipt Date: 20120614
  Transmission Date: 20120825
  Serious: Yes (Hospitalization)
  Sender: FDA-Public Use
  Company Number: CA-JNJFOC-20120607521

PATIENT
  Sex: Male
  Weight: 67.9 kg

DRUGS (14)
  1. RISPERIDONE [Concomitant]
     Route: 065
  2. VITAMIN B-12 [Concomitant]
     Route: 065
  3. IMURAN [Suspect]
     Indication: PRODUCT USED FOR UNKNOWN INDICATION
     Route: 065
  4. LAMOTRIGINE [Concomitant]
     Route: 065
  5. MULTI-VITAMINS [Concomitant]
     Route: 065
  6. METFORMIN HCL [Concomitant]
     Route: 065
  7. APO-FOLIC [Concomitant]
     Route: 065
  8. CO-ETIDROCAL [Concomitant]
     Route: 065
  9. QUETIAPINE [Concomitant]
     Route: 065
  10. CITALOPRAM HYDROBROMIDE [Concomitant]
     Route: 065
  11. AZATHIOPRINE [Concomitant]
     Route: 065
  12. REMICADE [Suspect]
     Indication: CROHN'S DISEASE
     Dosage: START DATE:POSSIBLY IN 2009
     Route: 042
  13. VITAMIN D [Concomitant]
     Route: 065
  14. INVEGA [Concomitant]
     Route: 065

REACTIONS (3)
  - HAEMOCHROMATOSIS [None]
  - LUNG ABSCESS [None]
  - IMMUNOSUPPRESSION [None]
